FAERS Safety Report 8179654-2 (Version None)
Quarter: 2012Q1

REPORT INFORMATION
  Report Type: 
  Country: None (occurrence: None)
  Receive Date: 20120229
  Receipt Date: 20120222
  Transmission Date: 20120608
  Serious: Yes (Other)
  Sender: FDA-Public Use
  Company Number: ADR-2012-00435

PATIENT
  Age: 6 Year
  Sex: Female

DRUGS (1)
  1. BACLOFEN [Suspect]
     Dosage: UNK

REACTIONS (3)
  - HYDROCEPHALUS [None]
  - FLUID RETENTION [None]
  - INTRACRANIAL HYPOTENSION [None]
